FAERS Safety Report 23886766 (Version 2)
Quarter: 2024Q2

REPORT INFORMATION
  Report Type: Spontaneous
  Country: US (occurrence: US)
  Receive Date: 20240522
  Receipt Date: 20240613
  Transmission Date: 20240716
  Serious: No
  Sender: FDA-Public Use
  Company Number: US-BIOGEN-2024BI01264797

PATIENT
  Sex: Male

DRUGS (1)
  1. SKYCLARYS [Suspect]
     Active Substance: OMAVELOXOLONE
     Indication: Friedreich^s ataxia
     Route: 050
     Dates: start: 20230817

REACTIONS (8)
  - Epistaxis [Unknown]
  - Chromaturia [Unknown]
  - Pruritus [Unknown]
  - Monocyte count abnormal [Unknown]
  - Headache [Unknown]
  - Alanine aminotransferase increased [Unknown]
  - Underdose [Unknown]
  - Intentional product misuse [Unknown]
